FAERS Safety Report 5292946-X (Version None)
Quarter: 2007Q2

REPORT INFORMATION
  Report Type: 
  Country: None (occurrence: None)
  Receive Date: 20070411
  Receipt Date: 20070402
  Transmission Date: 20071010
  Serious: Yes (Hospitalization)
  Sender: FDA-Public Use
  Company Number: GB-JNJFOC-20070101041

PATIENT
  Age: 67 Year
  Sex: Female

DRUGS (5)
  1. CAELYX [Suspect]
     Route: 042
  2. CAELYX [Suspect]
     Indication: OVARIAN CANCER
     Route: 042
  3. DOMPERIDONE [Concomitant]
     Route: 048
  4. DEXAMETHASONE [Concomitant]
     Indication: PREMEDICATION
     Route: 048
  5. WARFARIN SODIUM [Concomitant]
     Route: 065

REACTIONS (2)
  - BRONCHITIS [None]
  - DYSPNOEA [None]
